FAERS Safety Report 9507130 (Version 1)
Quarter: 2013Q1

REPORT INFORMATION
  Report Type: Spontaneous
  Country: US (occurrence: None)
  Receive Date: 20130305
  Receipt Date: 20130305
  Transmission Date: 20140127
  Serious: Yes (Hospitalization)
  Sender: FDA-Public Use
  Company Number: 163-21880-12052630

PATIENT
  Age: 67 Year
  Sex: Female

DRUGS (6)
  1. REVLIMID [Suspect]
     Indication: PLASMA CELL MYELOMA
     Dosage: 5 MG, D FOR 21 DAYS, PO
     Route: 048
     Dates: start: 20120310
  2. CRESTOR (ROSUVASTATIN) [Concomitant]
  3. LEVOTHYROIN (LEVOTHYROXINE SODIUM) [Concomitant]
  4. DEXAMETHASONE (DEXAMETHASONE) [Concomitant]
  5. VELCARD [Concomitant]
  6. TYLENOL (PARACETAMOL) [Concomitant]

REACTIONS (1)
  - Pneumonia [None]
